FAERS Safety Report 5585620-3 (Version None)
Quarter: 2008Q1

REPORT INFORMATION
  Report Type: 
  Country: None (occurrence: None)
  Receive Date: 20080109
  Receipt Date: 20080104
  Transmission Date: 20080703
  Serious: Yes (Other)
  Sender: FDA-Public Use
  Company Number: BE-MERCK-0712BEL00038

PATIENT
  Age: 78 Year
  Sex: Female
  Weight: 78 kg

DRUGS (7)
  1. ZOCOR [Suspect]
     Indication: HYPERCHOLESTEROLAEMIA
     Route: 048
  2. BLOCADREN [Concomitant]
     Indication: CORONARY ARTERY DISEASE
     Route: 048
     Dates: start: 19850101
  3. ENALAPRIL MALEATE [Concomitant]
     Indication: HYPERTENSION
     Route: 048
  4. AMILORIDE HYDROCHLORIDE AND HYDROCHLOROTHIAZIDE [Concomitant]
     Indication: HYPERTENSION
     Route: 048
     Dates: start: 19860101
  5. BARNIDIPINE HYDROCHLORIDE [Concomitant]
     Route: 048
     Dates: start: 20060101
  6. NITROGLYCERIN [Concomitant]
     Indication: ANGINA PECTORIS
     Route: 061
     Dates: start: 19900101
  7. ASPIRIN [Concomitant]
     Route: 048
     Dates: start: 19900101

REACTIONS (3)
  - ANGINA UNSTABLE [None]
  - CARDIAC FAILURE [None]
  - OEDEMA PERIPHERAL [None]
